FAERS Safety Report 8606831-6 (Version None)
Quarter: 2012Q3

REPORT INFORMATION
  Report Type: 
  Country: None (occurrence: None)
  Receive Date: 20120820
  Receipt Date: 20120815
  Transmission Date: 20120928
  Serious: Yes (Hospitalization, Other)
  Sender: FDA-Public Use
  Company Number: CA-ROCHE-790576

PATIENT
  Sex: Female
  Weight: 51.756 kg

DRUGS (16)
  1. ATIVAN [Concomitant]
  2. ATORVASTATIN [Concomitant]
  3. LIPITOR [Concomitant]
  4. NITRO-DUR [Concomitant]
  5. NORVASC [Concomitant]
  6. RAMIPRIL [Concomitant]
  7. GLICLAZIDE [Concomitant]
  8. PANTOPRAZOLE [Concomitant]
  9. BISOPROLOL FUMARATE [Concomitant]
  10. ASPIRIN [Concomitant]
  11. ROACTEMRA [Suspect]
     Indication: RHEUMATOID ARTHRITIS
     Route: 042
     Dates: start: 20110530, end: 20120618
  12. FOSAMAX [Concomitant]
  13. PANTOPRAZOLE SODIUM [Concomitant]
  14. PREDNISONE [Concomitant]
  15. ASPIRIN [Concomitant]
  16. OXYCODONE HCL AND ACETAMINOPHEN [Concomitant]

REACTIONS (6)
  - DEHYDRATION [None]
  - PNEUMONIA [None]
  - INCOHERENT [None]
  - ABASIA [None]
  - HYPERKALAEMIA [None]
  - THROMBOSIS [None]
